FAERS Safety Report 9581418 (Version 1)
Quarter: 2013Q4

REPORT INFORMATION
  Report Type: Report from Study
  Country: AR (occurrence: AR)
  Receive Date: 20131002
  Receipt Date: 20131002
  Transmission Date: 20140711
  Serious: Yes (Hospitalization)
  Sender: FDA-Public Use
  Company Number: PHHY2013AR109810

PATIENT
  Sex: Male

DRUGS (3)
  1. EXFORGE D [Suspect]
     Indication: HYPERTENSION
     Dosage: 1 DF(160/5/12.5 MG), DAILY
     Route: 048
  2. DIOVAN [Concomitant]
     Dosage: 160 MG, DAILY
     Route: 048
     Dates: start: 20130920
  3. TEGRETOL [Concomitant]
     Dosage: UNK UKN, UNK
     Dates: start: 20130920

REACTIONS (1)
  - Cerebrovascular accident [Recovering/Resolving]
